FAERS Safety Report 7459882-1 (Version None)
Quarter: 2011Q2

REPORT INFORMATION
  Report Type: 
  Country: None (occurrence: None)
  Receive Date: 20110505
  Receipt Date: 20110429
  Transmission Date: 20111010
  Serious: Yes (Other)
  Sender: FDA-Public Use
  Company Number: US-PFIZER INC-2011054315

PATIENT
  Sex: Female

DRUGS (1)
  1. DILANTIN [Suspect]
     Indication: CONVULSION
     Dosage: UNK
     Route: 048

REACTIONS (17)
  - VISUAL IMPAIRMENT [None]
  - CHEST PAIN [None]
  - SOMNOLENCE [None]
  - CONVULSION [None]
  - MULTIPLE SCLEROSIS [None]
  - BURNING SENSATION [None]
  - CRYING [None]
  - STEVENS-JOHNSON SYNDROME [None]
  - DIZZINESS [None]
  - SKIN REACTION [None]
  - NERVOUSNESS [None]
  - TOXICITY TO VARIOUS AGENTS [None]
  - PAIN [None]
  - GAIT DISTURBANCE [None]
  - HEADACHE [None]
  - GINGIVAL DISORDER [None]
  - MIGRAINE [None]
